FAERS Safety Report 8134312-5 (Version None)
Quarter: 2012Q1

REPORT INFORMATION
  Report Type: 
  Country: None (occurrence: None)
  Receive Date: 20120209
  Receipt Date: 20120126
  Transmission Date: 20120608
  Serious: Yes (Other)
  Sender: FDA-Public Use
  Company Number: JPI-P-010338

PATIENT
  Age: 24 Year
  Sex: Female

DRUGS (13)
  1. DEXTROAMPHETAMINE [Concomitant]
  2. PENICILLIN [Concomitant]
  3. XYREM [Suspect]
     Indication: NARCOLEPSY
     Dosage: SEE IMAGE: ORAL
     Route: 048
     Dates: start: 20100408, end: 20100422
  4. XYREM [Suspect]
     Indication: NARCOLEPSY
     Dosage: SEE IMAGE: ORAL
     Route: 048
     Dates: start: 20100508, end: 20110426
  5. XYREM [Suspect]
     Indication: NARCOLEPSY
     Dosage: SEE IMAGE: ORAL
     Route: 048
     Dates: start: 20100304, end: 20100407
  6. XYREM [Suspect]
     Indication: NARCOLEPSY
     Dosage: SEE IMAGE: ORAL
     Route: 048
     Dates: start: 20100204, end: 20100303
  7. XYREM [Suspect]
     Indication: NARCOLEPSY
     Dosage: SEE IMAGE: ORAL
     Route: 048
     Dates: start: 20110427, end: 20110602
  8. XYREM [Suspect]
     Indication: NARCOLEPSY
     Dosage: SEE IMAGE: ORAL
     Route: 048
     Dates: start: 20100423, end: 20100507
  9. XYREM [Suspect]
     Indication: NARCOLEPSY
     Dosage: SEE IMAGE: ORAL
     Route: 048
     Dates: start: 20110603, end: 20110801
  10. PANTOPRAZOLE [Concomitant]
  11. NAPROXEN [Concomitant]
  12. CAFFEINE [Concomitant]
  13. AMINOCYCLINE [Concomitant]

REACTIONS (16)
  - DYSGEUSIA [None]
  - WEIGHT DECREASED [None]
  - DECREASED APPETITE [None]
  - NAUSEA [None]
  - BRUXISM [None]
  - HYPERHIDROSIS [None]
  - PARAESTHESIA [None]
  - ARTHRITIS [None]
  - DYSPHAGIA [None]
  - ACNE [None]
  - GASTROOESOPHAGEAL REFLUX DISEASE [None]
  - PAIN [None]
  - ARTHRALGIA [None]
  - INSOMNIA [None]
  - FATIGUE [None]
  - HORMONE LEVEL ABNORMAL [None]
